FAERS Safety Report 8025291-X (Version None)
Quarter: 2012Q1

REPORT INFORMATION
  Report Type: 
  Country: None (occurrence: None)
  Receive Date: 20120105
  Receipt Date: 20120103
  Transmission Date: 20120608
  Serious: Yes (Hospitalization)
  Sender: FDA-Public Use
  Company Number: US-B.I. PHARMACEUTICALS,INC./RIDGEFIELD-2011-BP-28381BP

PATIENT
  Sex: Male

DRUGS (4)
  1. PRADAXA [Suspect]
     Indication: ATRIAL FIBRILLATION
     Dosage: 300 MG
     Route: 048
     Dates: start: 20111019
  2. DILTIAZEM [Concomitant]
     Indication: HYPERTENSION
     Dates: end: 20111104
  3. LOVAZA [Concomitant]
     Dates: end: 20111104
  4. COLCHICINE [Concomitant]
     Indication: GOUT
     Dates: end: 20111104

REACTIONS (6)
  - BLOOD PRESSURE INCREASED [None]
  - DIZZINESS [None]
  - DIARRHOEA [None]
  - CONFUSIONAL STATE [None]
  - HEART RATE IRREGULAR [None]
  - BALANCE DISORDER [None]
